FAERS Safety Report 19010210 (Version 1)
Quarter: 2021Q1

REPORT INFORMATION
  Report Type: Spontaneous
  Country: TR (occurrence: TR)
  Receive Date: 20210316
  Receipt Date: 20210316
  Transmission Date: 20210420
  Serious: Yes (Other)
  Sender: FDA-Public Use
  Company Number: TR-CELLTRION INC.-2021TR002893

PATIENT

DRUGS (2)
  1. INFLIXIMAB (UNKNOWN) [Suspect]
     Active Substance: INFLIXIMAB
     Indication: JUVENILE IDIOPATHIC ARTHRITIS
     Dosage: MEDIAN INDUCTION DOSAGE WAS 5 MG/ KG (MEAN = 5.74 +/? 2.7 MG/KG) EVERY FOUR WEEKS THEREAFTER
  2. INFLIXIMAB (UNKNOWN) [Suspect]
     Active Substance: INFLIXIMAB
     Indication: UVEITIS
     Dosage: MEDIAN INDUCTION DOSAGE WAS 5 MG/ KG (MEAN = 5.74 +/? 2.7 MG/KG) DOSED EVERY TWO WEEKS FOR THE FIRST

REACTIONS (9)
  - Adverse event [Unknown]
  - Influenza like illness [Unknown]
  - Iris adhesions [Unknown]
  - Glaucoma [Unknown]
  - Urticaria [Unknown]
  - Cataract [Unknown]
  - Lupus-like syndrome [Unknown]
  - Blindness [Unknown]
  - Upper respiratory tract infection [Unknown]
